FAERS Safety Report 5177389-1 (Version None)
Quarter: 2006Q4

REPORT INFORMATION
  Report Type: 
  Country: None (occurrence: None)
  Receive Date: 20061207
  Receipt Date: 20061122
  Transmission Date: 20070319
  Serious: Yes (Other)
  Sender: FDA-Public Use
  Company Number: 2006148610

PATIENT
  Age: 22 Year
  Sex: Female

DRUGS (2)
  1. ALPRAZOLAM [Suspect]
     Dosage: 2.4 MG (0.6 MG, 4 IN 1 D), ORAL
     Route: 048
     Dates: start: 20060225
  2. SEDES G (APRONAL, CAFFEINE, PHENACETIN, PROPYPHENAZONE) [Concomitant]

REACTIONS (2)
  - VISUAL BRIGHTNESS [None]
  - VISUAL FIELD DEFECT [None]
